FAERS Safety Report 5472235-0 (Version None)
Quarter: 2007Q3

REPORT INFORMATION
  Report Type: 
  Country: None (occurrence: None)
  Receive Date: 20070926
  Receipt Date: 20070913
  Transmission Date: 20080115
  Serious: Yes (Death)
  Sender: FDA-Public Use
  Company Number: 2007331168

PATIENT
  Age: 3 Year
  Sex: 0

DRUGS (2)
  1. DIPHENHYDRAMINE HCL [Suspect]
     Indication: PRURITUS
     Dosage: 5 ML EVERY 6 HOURS AS NEEDED (5 ML), ORAL
     Route: 048
  2. ACETAMINOPHEN [Suspect]
     Indication: PYREXIA
     Dosage: ORAL
     Route: 048

REACTIONS (10)
  - BLOOD GLUCOSE DECREASED [None]
  - BLOOD PRESSURE DECREASED [None]
  - CYANOSIS [None]
  - DRY EYE [None]
  - DRY MOUTH [None]
  - GENERAL PHYSICAL HEALTH DETERIORATION [None]
  - MYDRIASIS [None]
  - RESPIRATORY RATE INCREASED [None]
  - SOMNOLENCE [None]
  - UNRESPONSIVE TO STIMULI [None]
